FAERS Safety Report 6079779-1 (Version None)
Quarter: 2009Q1

REPORT INFORMATION
  Report Type: 
  Country: None (occurrence: None)
  Receive Date: 20090212
  Receipt Date: 20090130
  Transmission Date: 20090719
  Serious: Yes (Other)
  Sender: FDA-Public Use
  Company Number: 2008US003494

PATIENT
  Age: 76 Year
  Sex: Male
  Weight: 55.2 kg

DRUGS (21)
  1. AMBISOME [Suspect]
     Indication: BRONCHOPULMONARY ASPERGILLOSIS
     Dosage: 125 MG, UID/QD, IV NOS; 250 MG, UID/QD, IV NOS; 200 MG, UID/QD, IV NOS
     Route: 042
     Dates: start: 20070713, end: 20070719
  2. AMBISOME [Suspect]
     Indication: BRONCHOPULMONARY ASPERGILLOSIS
     Dosage: 125 MG, UID/QD, IV NOS; 250 MG, UID/QD, IV NOS; 200 MG, UID/QD, IV NOS
     Route: 042
     Dates: start: 20070720, end: 20070721
  3. AMBISOME [Suspect]
     Indication: BRONCHOPULMONARY ASPERGILLOSIS
     Dosage: 125 MG, UID/QD, IV NOS; 250 MG, UID/QD, IV NOS; 200 MG, UID/QD, IV NOS
     Route: 042
     Dates: start: 20070722, end: 20070724
  4. AMBISOME [Suspect]
     Indication: BRONCHOPULMONARY ASPERGILLOSIS
     Dosage: 125 MG, UID/QD, IV NOS; 250 MG, UID/QD, IV NOS; 200 MG, UID/QD, IV NOS
     Route: 042
     Dates: start: 20070725, end: 20070728
  5. FUNGUARD(MICAFUNGIN) INJECTION [Suspect]
     Indication: DRUG USE FOR UNKNOWN INDICATION
     Dosage: 75 MG, UID/QD, IV NOS
     Route: 042
     Dates: start: 20070725, end: 20070730
  6. GANCICLOVIR [Suspect]
     Indication: DRUG USE FOR UNKNOWN INDICATION
     Dosage: 300 MG, UID/QD, IV NOS
     Route: 042
  7. HARNAL (TAMSULOSIN HYDROCHLORIDE) [Concomitant]
  8. LAC B (LACTOBACILLUS BIFIDUS, LYOPHILIZED) [Concomitant]
  9. MAGNESIUM OXIDE (MAGNESIUM OXIDE) [Concomitant]
  10. LORMETAZEPAM (LORMETAZEPAM) [Concomitant]
  11. PREDNISOLONE [Concomitant]
  12. MUCOSTA (REBAMIPIDE) [Concomitant]
  13. SUCRALFATE [Concomitant]
  14. SODIUM PICOSULFATE (SODIUM PICOSULFATE) [Concomitant]
  15. FUNGIZONE [Concomitant]
  16. LANSOPRAZOLE [Concomitant]
  17. CHICHINA (CARBAZOCHROME SODIUM SULFONATE) [Concomitant]
  18. RIKAVARIN (TRANEXAMIC ACID) [Concomitant]
  19. OMEPRAL (OMEPRAZOLE SODIUM) [Concomitant]
  20. VALIXA (VALGANCICLOVIR HYDROCHLORIDE) [Concomitant]
  21. RED BLOOD CELLS [Concomitant]

REACTIONS (7)
  - ALANINE AMINOTRANSFERASE INCREASED [None]
  - ANAEMIA [None]
  - ASPARTATE AMINOTRANSFERASE INCREASED [None]
  - BLOOD ALKALINE PHOSPHATASE INCREASED [None]
  - BLOOD LACTATE DEHYDROGENASE INCREASED [None]
  - BLOOD POTASSIUM DECREASED [None]
  - CREATININE RENAL CLEARANCE DECREASED [None]
